FAERS Safety Report 6936941-0 (Version None)
Quarter: 2010Q3

REPORT INFORMATION
  Report Type: 
  Country: None (occurrence: None)
  Receive Date: 20100823
  Receipt Date: 20100817
  Transmission Date: 20110219
  Serious: Yes (Death, Hospitalization, Other)
  Sender: FDA-Public Use
  Company Number: KP-ROXANE LABORATORIES, INC.-2010-RO-01103RO

PATIENT
  Age: 72 Year
  Sex: Male

DRUGS (6)
  1. PREDNISONE [Suspect]
     Indication: PNEUMONIA PNEUMOCOCCAL
     Dosage: 10 MG
     Route: 048
  2. PREDNISONE [Suspect]
     Indication: ASTHMA
  3. GANCICLOVIR [Suspect]
     Indication: EVIDENCE BASED TREATMENT
     Route: 042
  4. AMPHOTERICIN B DEOXYCHOLATE [Suspect]
     Indication: ASPERGILLOSIS
  5. LIPOSOMAL AMPHOTERICIN B [Suspect]
     Indication: ASPERGILLOSIS
  6. VANCOMYCIN [Suspect]
     Indication: STAPHYLOCOCCAL INFECTION

REACTIONS (7)
  - ASPERGILLOSIS [None]
  - COLITIS [None]
  - COLON CANCER [None]
  - HAEMATOCHEZIA [None]
  - LUNG INFECTION PSEUDOMONAL [None]
  - PYREXIA [None]
  - STAPHYLOCOCCAL INFECTION [None]
